FAERS Safety Report 8988843 (Version 15)
Quarter: 2015Q1

REPORT INFORMATION
  Report Type: Report from Study
  Country: CA (occurrence: CA)
  Receive Date: 20121228
  Receipt Date: 20150219
  Transmission Date: 20150721
  Serious: Yes (Hospitalization, Other)
  Sender: FDA-Public Use
  Company Number: CA-ROCHE-1173334

PATIENT
  Sex: Male
  Weight: 73 kg

DRUGS (8)
  1. NEXIUM [Concomitant]
     Active Substance: ESOMEPRAZOLE MAGNESIUM
  2. ACTEMRA [Suspect]
     Active Substance: TOCILIZUMAB
     Route: 042
     Dates: start: 20150209, end: 20150209
  3. FOLIC ACID. [Concomitant]
     Active Substance: FOLIC ACID
  4. DICLOFENAC [Concomitant]
     Active Substance: DICLOFENAC
  5. LEFLUNOMIDE. [Concomitant]
     Active Substance: LEFLUNOMIDE
  6. METHOTREXATE [Concomitant]
     Active Substance: METHOTREXATE
  7. ACTEMRA [Suspect]
     Active Substance: TOCILIZUMAB
     Indication: RHEUMATOID ARTHRITIS
     Route: 042
     Dates: start: 20111125
  8. ACTEMRA [Suspect]
     Active Substance: TOCILIZUMAB
     Route: 042
     Dates: start: 20141111

REACTIONS (13)
  - Peripheral swelling [Unknown]
  - Drug ineffective [Unknown]
  - Joint dislocation [Not Recovered/Not Resolved]
  - Malaise [Unknown]
  - Cough [Recovering/Resolving]
  - Pain in extremity [Unknown]
  - Post procedural complication [Recovered/Resolved]
  - Musculoskeletal pain [Not Recovered/Not Resolved]
  - Pyrexia [Recovering/Resolving]
  - Arthritis bacterial [Recovered/Resolved]
  - Rhinorrhoea [Recovering/Resolving]
  - Weight increased [Not Recovered/Not Resolved]
  - Oropharyngeal pain [Recovering/Resolving]

NARRATIVE: CASE EVENT DATE: 2013
